FAERS Safety Report 16737933 (Version 3)
Quarter: 2020Q1

REPORT INFORMATION
  Report Type: Report from Study
  Country: None (occurrence: US)
  Receive Date: 20190824
  Receipt Date: 20200219
  Transmission Date: 20200409
  Serious: No
  Sender: FDA-Public Use
  Company Number: US-ABBVIE-19K-163-2688939-00

PATIENT
  Age: 70 Year
  Sex: Female
  Weight: 61.29 kg

DRUGS (1)
  1. HUMIRA [Suspect]
     Active Substance: ADALIMUMAB
     Indication: RHEUMATOID ARTHRITIS
     Dosage: CITRATE FREE
     Route: 058
     Dates: start: 20181218

REACTIONS (15)
  - Arthralgia [Unknown]
  - Herpes zoster [Recovering/Resolving]
  - Scar [Unknown]
  - Arthritis [Not Recovered/Not Resolved]
  - Joint swelling [Unknown]
  - Thrombosis [Unknown]
  - Pain [Unknown]
  - Corneal lesion [Recovered/Resolved]
  - Fear [Unknown]
  - Gastric disorder [Recovered/Resolved]
  - Vision blurred [Unknown]
  - Eye inflammation [Unknown]
  - Chills [Recovered/Resolved]
  - Osteoarthritis [Not Recovered/Not Resolved]
  - Skin discolouration [Unknown]

NARRATIVE: CASE EVENT DATE: 201901
